FAERS Safety Report 6409568-7 (Version None)
Quarter: 2009Q4

REPORT INFORMATION
  Report Type: 
  Country: None (occurrence: None)
  Receive Date: 20091020
  Receipt Date: 20091020
  Transmission Date: 20100525
  Serious: Yes (Other)
  Sender: FDA-Public Use
  Company Number: None

PATIENT
  Age: 47 Year
  Sex: Male
  Weight: 90.7194 kg

DRUGS (2)
  1. CLEVIPREX [Suspect]
     Indication: HYPERTENSION
     Dosage: 2-14ML/HRS WEANED IV DRIP
     Route: 041
     Dates: start: 20090918, end: 20090924
  2. PROPOFOL [Suspect]
     Indication: SEDATION
     Dosage: 15-20ML/HR WEANED IV DRIP
     Route: 041
     Dates: start: 20090916, end: 20090924

REACTIONS (3)
  - BLOOD AMYLASE INCREASED [None]
  - INAPPROPRIATE SCHEDULE OF DRUG ADMINISTRATION [None]
  - LIPASE INCREASED [None]
